FAERS Safety Report 9224101 (Version 1)
Quarter: 2013Q1

REPORT INFORMATION
  Report Type: Spontaneous
  Country: US (occurrence: US)
  Receive Date: 20120914
  Receipt Date: 20120914
  Transmission Date: 20140127
  Serious: Yes (Other)
  Sender: FDA-Public Use
  Company Number: JPI-P-018307

PATIENT
  Age: 50 Year
  Sex: Male

DRUGS (2)
  1. XYREM (500 MG/ML SOLUTION)(SODIUM OXYBATE) [Suspect]
     Indication: NARCOLEPSY
     Dosage: 4.5 GM (2.25 GM,2 IN 1 D)
     Route: 048
     Dates: start: 20110517, end: 201110
  2. MEDICATION FOR HEARTBURN [Concomitant]

REACTIONS (1)
  - Sleep apnoea syndrome [None]
